FAERS Safety Report 7826118-9 (Version None)
Quarter: 2011Q4

REPORT INFORMATION
  Report Type: 
  Country: None (occurrence: None)
  Receive Date: 20111019
  Receipt Date: 20111006
  Transmission Date: 20120403
  Serious: No
  Sender: FDA-Public Use
  Company Number: US-ASTRAZENECA-2011SE04415

PATIENT
  Age: 67 Year
  Sex: Female

DRUGS (3)
  1. ANTIBIOTICS [Concomitant]
  2. CRESTOR [Suspect]
     Route: 048
  3. NEXIUM [Suspect]
     Route: 048

REACTIONS (13)
  - MALAISE [None]
  - BLOOD CHOLESTEROL INCREASED [None]
  - CARDIAC DISORDER [None]
  - PAIN [None]
  - ABDOMINAL DISCOMFORT [None]
  - IMMUNODEFICIENCY [None]
  - PYREXIA [None]
  - ABASIA [None]
  - DRUG DOSE OMISSION [None]
  - INFECTION [None]
  - DIARRHOEA [None]
  - ADVERSE EVENT [None]
  - INFLUENZA [None]
